FAERS Safety Report 7269243-6 (Version None)
Quarter: 2011Q1

REPORT INFORMATION
  Report Type: 
  Country: None (occurrence: None)
  Receive Date: 20110202
  Receipt Date: 20110118
  Transmission Date: 20110831
  Serious: Yes (Hospitalization)
  Sender: FDA-Public Use
  Company Number: US-ELI_LILLY_AND_COMPANY-US201101004457

PATIENT
  Sex: Female

DRUGS (5)
  1. CALCIUM [Concomitant]
  2. PROTONIX [Concomitant]
  3. FORTEO [Suspect]
     Indication: OSTEOPOROSIS
     Dosage: 20 UG, DAILY (1/D)
  4. FOLIC ACID [Concomitant]
  5. PAXIL [Concomitant]

REACTIONS (1)
  - CELLULITIS [None]
